FAERS Safety Report 4374933-9 (Version None)
Quarter: 2004Q2

REPORT INFORMATION
  Report Type: 
  Country: None (occurrence: None)
  Receive Date: 20040604
  Receipt Date: 20040524
  Transmission Date: 20050107
  Serious: Yes (Hospitalization)
  Sender: FDA-Public Use
  Company Number: GB-JNJFOC-20040505349

PATIENT
  Age: 59 Year
  Sex: Female

DRUGS (12)
  1. REMICADE [Suspect]
     Indication: RHEUMATOID ARTHRITIS
     Dosage: SEE IMAGE, INTRAVENOUS
     Route: 042
     Dates: end: 20040203
  2. REMICADE [Suspect]
     Indication: RHEUMATOID ARTHRITIS
     Dosage: SEE IMAGE, INTRAVENOUS
     Route: 042
     Dates: start: 20030430
  3. ARTHROTEC [Concomitant]
  4. METHOTREXATE [Concomitant]
  5. FOLIC ACID [Concomitant]
  6. PREDNISOLONE [Concomitant]
  7. LOSEC (OMEPRAZOLE) [Concomitant]
  8. CO-PROXAMOL (APOREX) [Concomitant]
  9. HRT (ANDROGENS AND FEMALE SEX HORMONES IN COMB) [Concomitant]
  10. SERETIDE (SERETIDE) [Concomitant]
  11. VENTOLIN [Concomitant]
  12. SOLAIRE (ALL OTHER THERAPEUTIC PRODUCTS) [Concomitant]

REACTIONS (3)
  - HAEMODIALYSIS [None]
  - MULTI-ORGAN FAILURE [None]
  - SEPSIS [None]
